FAERS Safety Report 10312793 (Version 3)
Quarter: 2014Q3

REPORT INFORMATION
  Report Type: Spontaneous
  Country: BR (occurrence: BR)
  Receive Date: 20140718
  Receipt Date: 20140801
  Transmission Date: 20150326
  Serious: Yes (Hospitalization, Other)
  Sender: FDA-Public Use
  Company Number: BR-BAYER-2014-060689

PATIENT
  Age: 37 Year
  Sex: Female
  Weight: 150 kg

DRUGS (2)
  1. YAZ [Suspect]
     Active Substance: DROSPIRENONE\ETHINYL ESTRADIOL
     Indication: GENITAL HAEMORRHAGE
     Dosage: 1 DF, QD
     Route: 048
     Dates: start: 201312, end: 20140313
  2. YAZ [Suspect]
     Active Substance: DROSPIRENONE\ETHINYL ESTRADIOL
     Indication: OVARIAN CYST

REACTIONS (9)
  - Right ventricular hypertrophy [Recovered/Resolved]
  - Muscle spasms [Recovered/Resolved]
  - Deep vein thrombosis [None]
  - Pulmonary embolism [Recovered/Resolved]
  - Pulmonary hypertension [Recovered/Resolved]
  - Metrorrhagia [Recovered/Resolved]
  - Off label use [None]
  - Fatigue [Recovered/Resolved]
  - Syncope [Recovered/Resolved]

NARRATIVE: CASE EVENT DATE: 201312
